FAERS Safety Report 5010138-6 (Version None)
Quarter: 2006Q2

REPORT INFORMATION
  Report Type: 
  Country: None (occurrence: None)
  Receive Date: 20060404
  Receipt Date: 20051117
  Transmission Date: 20061013
  Serious: No
  Sender: FDA-Public Use
  Company Number: US200511002253

PATIENT
  Age: 68 Year
  Sex: Male

DRUGS (1)
  1. CYMBALTA [Suspect]
     Dosage: 60 MG

REACTIONS (4)
  - CONFUSIONAL STATE [None]
  - DIZZINESS [None]
  - FALL [None]
  - HEAD INJURY [None]
